FAERS Safety Report 5896779-2 (Version None)
Quarter: 2008Q3

REPORT INFORMATION
  Report Type: 
  Country: None (occurrence: None)
  Receive Date: 20080924
  Receipt Date: 20080707
  Transmission Date: 20090109
  Serious: Yes (Other)
  Sender: FDA-Public Use
  Company Number: US-ASTRAZENECA-2007UW27804

PATIENT
  Age: 49 Year
  Sex: Female
  Weight: 106.6 kg

DRUGS (2)
  1. SEROQUEL [Suspect]
     Indication: SCHIZOPHRENIA
     Dosage: 100 MG, 200 MG AND 800 MG
     Route: 048
     Dates: start: 20000101
  2. WELLBUTRIN XL [Concomitant]
     Dates: start: 20060101

REACTIONS (7)
  - BLOOD CHOLESTEROL INCREASED [None]
  - CEREBROVASCULAR ACCIDENT [None]
  - DIABETES MELLITUS [None]
  - DIZZINESS [None]
  - FALL [None]
  - HEADACHE [None]
  - THERMAL BURN [None]
